FAERS Safety Report 20438241 (Version 4)
Quarter: 2022Q1

REPORT INFORMATION
  Report Type: Spontaneous
  Country: FR (occurrence: FR)
  Receive Date: 20220207
  Receipt Date: 20220309
  Transmission Date: 20220424
  Serious: Yes (Hospitalization, Other)
  Sender: FDA-Public Use
  Company Number: FR-NOVARTISPH-NVSC2022FR025840

PATIENT
  Age: 17 Month
  Sex: Female
  Weight: 8.2 kg

DRUGS (9)
  1. ZOLGENSMA [Suspect]
     Active Substance: ONASEMNOGENE ABEPARVOVEC-XIOI
     Indication: Spinal muscular atrophy
     Dosage: UNK (9,4X10^14 VG) (WEIGHT AT TIME OF ADMINISTRATION 8.2)
     Route: 042
     Dates: start: 20211216
  2. PREDNISOLONE [Concomitant]
     Active Substance: PREDNISOLONE
     Indication: Product used for unknown indication
     Dosage: 2 MG/KG (NORMALIZATION OF PLATELETS AND TRANSAMINASES)
     Route: 065
     Dates: start: 20211214, end: 20211229
  3. PREDNISOLONE [Concomitant]
     Active Substance: PREDNISOLONE
     Dosage: 1.3 MG/KG (CONTINUATION OF THE DECREASE)
     Route: 065
     Dates: start: 20211229, end: 20220104
  4. PREDNISOLONE [Concomitant]
     Active Substance: PREDNISOLONE
     Dosage: 1 MG/KG (RESURGENCE OF TRANSAMINASES)
     Route: 065
     Dates: start: 20220104, end: 20220117
  5. PREDNISOLONE [Concomitant]
     Active Substance: PREDNISOLONE
     Dosage: 2 MG/KG (INDICATION OF BOLUS OF CORTICOSTEROIDS IN LIGHT OF THE TOXIC ASPECT AT ON THE LIVER BIOPSY)
     Route: 065
     Dates: start: 20220117, end: 20220209
  6. PREDNISOLONE [Concomitant]
     Active Substance: PREDNISOLONE
     Dosage: 2 MG/KG
     Route: 065
     Dates: start: 20220214
  7. METHYLPREDNISOLONE [Concomitant]
     Active Substance: METHYLPREDNISOLONE
     Indication: Product used for unknown indication
     Dosage: 10 MG/KG (THEN 5MG/KG)
     Route: 065
     Dates: start: 20220209, end: 20220213
  8. CEFTRIAXONE [Concomitant]
     Active Substance: CEFTRIAXONE
     Indication: Product used for unknown indication
     Dosage: 50 MG/KG
     Route: 065
     Dates: start: 20220202, end: 20220204
  9. BACTRIM [Concomitant]
     Active Substance: SULFAMETHOXAZOLE\TRIMETHOPRIM
     Indication: Product used for unknown indication
     Dosage: UNK UNK, BID (1 WEIGHT-DOSE BID)
     Route: 065
     Dates: start: 20220205, end: 20220214

REACTIONS (6)
  - Alpha-1 antitrypsin deficiency [Unknown]
  - Transaminases increased [Unknown]
  - Hepatic cytolysis [Recovering/Resolving]
  - Pyelonephritis [Recovered/Resolved]
  - Platelet count decreased [Unknown]
  - Gastroenteritis [Unknown]

NARRATIVE: CASE EVENT DATE: 20220101
